FAERS Safety Report 10818906 (Version 1)
Quarter: 2015Q1

REPORT INFORMATION
  Report Type: Spontaneous
  Country: TR (occurrence: TR)
  Receive Date: 20150218
  Receipt Date: 20150218
  Transmission Date: 20150721
  Serious: Yes (Life-Threatening, Other)
  Sender: FDA-Public Use
  Company Number: TR-BAXTER-2015BAX008246

PATIENT
  Age: 15 Year
  Sex: Male

DRUGS (2)
  1. ENDOXAN 1G. IV [Suspect]
     Active Substance: CYCLOPHOSPHAMIDE
     Indication: SYSTEMIC LUPUS ERYTHEMATOSUS
  2. ENDOXAN 1G. IV [Suspect]
     Active Substance: CYCLOPHOSPHAMIDE
     Indication: EVANS SYNDROME
     Route: 065

REACTIONS (3)
  - Intra-abdominal haemorrhage [Recovered/Resolved]
  - Thrombocytopenia [Recovered/Resolved]
  - Splenic rupture [Unknown]
